FAERS Safety Report 4317165-2 (Version None)
Quarter: 2004Q1

REPORT INFORMATION
  Report Type: 
  Country: None (occurrence: None)
  Receive Date: 20040312
  Receipt Date: 20040305
  Transmission Date: 20041129
  Serious: Yes (Hospitalization)
  Sender: FDA-Public Use
  Company Number: US-JNJFOC-20030901805

PATIENT
  Age: 66 Year
  Sex: Female

DRUGS (5)
  1. ULTRAM [Suspect]
     Indication: MYOFASCIAL PAIN SYNDROME
     Dosage: FOUR TIMES A DAY
     Dates: start: 20030401
  2. ULTRAM [Suspect]
     Indication: OSTEOARTHRITIS
     Dosage: FOUR TIMES A DAY
     Dates: start: 20030401
  3. MAXAIR [Concomitant]
  4. VANCERIL (BECLOMETASONE DIPROPIONATE) [Concomitant]
  5. PAXIL [Concomitant]

REACTIONS (7)
  - CHEST PAIN [None]
  - CORONARY ARTERY ATHEROSCLEROSIS [None]
  - CORONARY ARTERY STENOSIS [None]
  - DISCOMFORT [None]
  - ECONOMIC PROBLEM [None]
  - ELECTROCARDIOGRAM T WAVE ABNORMAL [None]
  - PAIN IN JAW [None]
